FAERS Safety Report 5905415-8 (Version None)
Quarter: 2008Q4

REPORT INFORMATION
  Report Type: 
  Country: None (occurrence: None)
  Receive Date: 20081001
  Receipt Date: 20080916
  Transmission Date: 20090506
  Serious: Yes (Other)
  Sender: FDA-Public Use
  Company Number: FR-GENENTECH-268048

PATIENT
  Sex: Male

DRUGS (9)
  1. XOLAIR [Suspect]
     Indication: ASTHMA
     Dosage: 300 MG, Q15D
     Dates: start: 20080811
  2. CRESTOR [Suspect]
     Indication: DYSLIPIDAEMIA
     Dosage: 1 TABLET, QD
     Dates: start: 19970101
  3. CORDARONE [Concomitant]
     Indication: DRUG USE FOR UNKNOWN INDICATION
  4. ZESTRIL [Concomitant]
     Indication: DRUG USE FOR UNKNOWN INDICATION
  5. DIGOXIN [Concomitant]
     Indication: DRUG USE FOR UNKNOWN INDICATION
  6. VASTAREL [Concomitant]
     Indication: DRUG USE FOR UNKNOWN INDICATION
  7. PREVISCAN [Concomitant]
     Indication: DRUG USE FOR UNKNOWN INDICATION
  8. LEXOMIL [Concomitant]
     Indication: DRUG USE FOR UNKNOWN INDICATION
  9. LASIX [Concomitant]
     Indication: DRUG USE FOR UNKNOWN INDICATION

REACTIONS (2)
  - BLOOD CREATINE PHOSPHOKINASE INCREASED [None]
  - MYALGIA [None]
